FAERS Safety Report 5332731-3 (Version None)
Quarter: 2007Q2

REPORT INFORMATION
  Report Type: 
  Country: None (occurrence: None)
  Receive Date: 20070523
  Receipt Date: 20070511
  Transmission Date: 20071010
  Serious: Yes (Other)
  Sender: FDA-Public Use
  Company Number: NL-PFIZER INC-2007039413

PATIENT
  Age: 77 Year
  Sex: Male
  Weight: 90 kg

DRUGS (4)
  1. LYRICA [Suspect]
     Indication: PAIN
     Route: 048
     Dates: start: 20070212, end: 20070101
  2. MIRTAZAPINE [Concomitant]
     Route: 048
  3. COAPROVEL [Concomitant]
     Route: 048
  4. SERETIDE DISKUS [Concomitant]
     Route: 039

REACTIONS (3)
  - CEREBRAL INFARCTION [None]
  - CEREBRAL THROMBOSIS [None]
  - HEMIPLEGIA [None]
